FAERS Safety Report 7789966-X (Version None)
Quarter: 2011Q3

REPORT INFORMATION
  Report Type: 
  Country: None (occurrence: None)
  Receive Date: 20110930
  Receipt Date: 20101104
  Transmission Date: 20111222
  Serious: No
  Sender: FDA-Public Use
  Company Number: US-ASTRAZENECA-2009UW17035

PATIENT
  Age: 61 Year
  Sex: Female
  Weight: 85.7 kg

DRUGS (7)
  1. WARFARIN SODIUM [Concomitant]
  2. ARIMIDEX [Suspect]
     Indication: BREAST CANCER
     Route: 048
     Dates: start: 20091101, end: 20100401
  3. ZOMETIA [Concomitant]
  4. BENAZEPRIL HYDROCHLORIDE [Concomitant]
  5. NARCO [Concomitant]
  6. FASLODEX [Suspect]
     Indication: BREAST CANCER
     Route: 030
     Dates: start: 20100401, end: 20101015
  7. FASLODEX [Suspect]
     Route: 030
     Dates: start: 20101015

REACTIONS (10)
  - LYMPHOEDEMA [None]
  - ARTHRALGIA [None]
  - DYSPNOEA [None]
  - SOMNOLENCE [None]
  - FATIGUE [None]
  - ABDOMINAL PAIN LOWER [None]
  - THROMBOSIS [None]
  - OEDEMA PERIPHERAL [None]
  - CARPAL TUNNEL SYNDROME [None]
  - HEADACHE [None]
